FAERS Safety Report 4349912-8 (Version None)
Quarter: 2004Q2

REPORT INFORMATION
  Report Type: 
  Country: None (occurrence: None)
  Receive Date: 20040428
  Receipt Date: 20040428
  Transmission Date: 20050107
  Serious: Yes (Hospitalization)
  Sender: FDA-Public Use
  Company Number: None

PATIENT
  Age: 66 Year
  Sex: Male
  Weight: 97.5234 kg

DRUGS (1)
  1. TAXOL [Suspect]
     Dosage: IMPLANTED 03/15/2004
     Dates: start: 20040315

REACTIONS (4)
  - ANGINA UNSTABLE [None]
  - DEVICE FAILURE [None]
  - INTERNATIONAL NORMALISED RATIO INCREASED [None]
  - STENT OCCLUSION [None]
